FAERS Safety Report 4622802-9 (Version None)
Quarter: 2005Q1

REPORT INFORMATION
  Report Type: 
  Country: None (occurrence: None)
  Receive Date: 20050329
  Receipt Date: 20050329
  Transmission Date: 20050727
  Serious: Yes (Other)
  Sender: FDA-Public Use
  Company Number: None

PATIENT
  Age: 81 Year
  Sex: Male

DRUGS (6)
  1. TEMAZEPAM [Suspect]
     Indication: INSOMNIA
     Dosage: 1 CAPSULE AT BEDTIME BY MOUTH
     Route: 048
  2. SYNTHOIRD [Concomitant]
  3. ACTONEL [Concomitant]
  4. GABAPENTIN [Concomitant]
  5. FUROSEMIDE [Concomitant]
  6. ZOCOR [Concomitant]

REACTIONS (4)
  - BONE PAIN [None]
  - FATIGUE [None]
  - HYPERHIDROSIS [None]
  - MYALGIA [None]
